FAERS Safety Report 13681411 (Version 2)
Quarter: 2017Q2

REPORT INFORMATION
  Report Type: Spontaneous
  Country: ZA (occurrence: ZA)
  Receive Date: 20170623
  Receipt Date: 20170629
  Transmission Date: 20170830
  Serious: Yes (Other)
  Sender: FDA-Public Use
  Company Number: ZA-ENDO PHARMACEUTICALS INC-2017-003484

PATIENT
  Sex: Male

DRUGS (4)
  1. AVEED [Suspect]
     Active Substance: TESTOSTERONE UNDECANOATE
     Indication: BLOOD TESTOSTERONE DECREASED
     Dosage: UNK UNKNOWN, Q6WK, FIRST INJECTION
     Route: 065
     Dates: start: 201602
  2. AVEED [Suspect]
     Active Substance: TESTOSTERONE UNDECANOATE
     Dosage: UNK UNKNOWN, THIRD INJECTION, 3 MONTHS AFTER THE FIRST
     Route: 065
     Dates: start: 2016
  3. AVEED [Suspect]
     Active Substance: TESTOSTERONE UNDECANOATE
     Dosage: UNK UNKNOWN, SECOND INJECTION, 6 WEEKS AFTER THE FIRST INJECTION
     Route: 065
     Dates: start: 2016
  4. AVEED [Suspect]
     Active Substance: TESTOSTERONE UNDECANOATE
     Dosage: UNK UNKNOWN, FOURTH INJECTION
     Route: 065

REACTIONS (6)
  - Loss of libido [Unknown]
  - Underdose [Recovered/Resolved]
  - Unevaluable event [Unknown]
  - Injection site abscess [Unknown]
  - Emotional disorder [Unknown]
  - Subcutaneous abscess [Unknown]

NARRATIVE: CASE EVENT DATE: 2016
